FAERS Safety Report 18559572 (Version 1)
Quarter: 2020Q4

REPORT INFORMATION
  Report Type: Spontaneous
  Country: US (occurrence: US)
  Receive Date: 20201005
  Receipt Date: 20201005
  Transmission Date: 20210114
  Serious: No
  Sender: FDA-Public Use
  Company Number: None

PATIENT
  Age: 4 Decade
  Sex: Female

DRUGS (5)
  1. LOPINAVIR [Suspect]
     Active Substance: LOPINAVIR
     Indication: COVID-19
     Route: 048
     Dates: start: 2020
  2. IMMUNOGLOBULINS, INTRAVENOUS [Suspect]
     Active Substance: HUMAN IMMUNOGLOBULIN G
     Indication: COVID-19
     Route: 042
     Dates: start: 2020
  3. INTERFERON ALFA-2B [Suspect]
     Active Substance: INTERFERON ALFA-2B
     Indication: COVID-19
     Dosage: ?          OTHER DOSE:5 MILLION IU;?
     Route: 055
     Dates: start: 2020
  4. METHYLPREDNISOLONE. [Suspect]
     Active Substance: METHYLPREDNISOLONE
     Indication: COVID-19
     Route: 048
     Dates: start: 2020
  5. UMIFENOVIR. [Suspect]
     Active Substance: UMIFENOVIR
     Indication: COVID-19
     Route: 048
     Dates: start: 2020

REACTIONS (6)
  - Product use issue [None]
  - Blood potassium decreased [None]
  - Respiratory failure [None]
  - Dyspepsia [None]
  - Hypoalbuminaemia [None]
  - Hypoproteinaemia [None]
